FAERS Safety Report 8216479-3 (Version None)
Quarter: 2012Q1

REPORT INFORMATION
  Report Type: 
  Country: None (occurrence: None)
  Receive Date: 20120316
  Receipt Date: 20120313
  Transmission Date: 20120608
  Serious: Yes (Other)
  Sender: FDA-Public Use
  Company Number: US-ABBOTT-12P-163-0914714-00

PATIENT
  Sex: Female
  Weight: 71.732 kg

DRUGS (14)
  1. FISH OIL [Suspect]
     Indication: PRODUCT USED FOR UNKNOWN INDICATION
  2. LITHIUM CARBONATE [Suspect]
     Indication: PRODUCT USED FOR UNKNOWN INDICATION
  3. UNSPECIFIED BIPOLAR DISORDER MEDICATIONS [Suspect]
     Indication: PRODUCT USED FOR UNKNOWN INDICATION
  4. UNSPECIFIED SINUSITIS SPRAY [Suspect]
     Indication: PRODUCT USED FOR UNKNOWN INDICATION
  5. LEXAPRO [Concomitant]
     Indication: DEPRESSION
     Dosage: 20 MG DAILY
  6. PAXIL CR [Concomitant]
     Indication: ANXIETY
  7. ERYTHROMYCIN [Suspect]
     Indication: TOOTH EXTRACTION
     Dates: start: 20040101
  8. WELLBUTRIN [Suspect]
     Indication: PRODUCT USED FOR UNKNOWN INDICATION
     Dates: start: 20040101
  9. VITAMIN D [Suspect]
     Indication: PRODUCT USED FOR UNKNOWN INDICATION
  10. PAXIL CR [Concomitant]
     Indication: DEPRESSION
     Dosage: 25 MG DAILY
  11. ZOCOR [Concomitant]
     Indication: BLOOD CHOLESTEROL INCREASED
     Dosage: 40 MG DAILY
  12. DEPAKOTE [Suspect]
     Indication: BIPOLAR DISORDER
  13. CALCIUM CARBONATE [Suspect]
     Indication: PRODUCT USED FOR UNKNOWN INDICATION
  14. VITAMIN E [Suspect]
     Indication: PRODUCT USED FOR UNKNOWN INDICATION

REACTIONS (7)
  - DRUG HYPERSENSITIVITY [None]
  - ALLERGIC RESPIRATORY SYMPTOM [None]
  - DERMATITIS ALLERGIC [None]
  - HYPERSENSITIVITY [None]
  - NAUSEA [None]
  - SUICIDAL IDEATION [None]
  - DRUG INEFFECTIVE [None]
